FAERS Safety Report 6395445-7 (Version None)
Quarter: 2009Q4

REPORT INFORMATION
  Report Type: 
  Country: None (occurrence: None)
  Receive Date: 20091009
  Receipt Date: 20090925
  Transmission Date: 20100525
  Serious: Yes (Hospitalization)
  Sender: FDA-Public Use
  Company Number: FR-GENENTECH-291364

PATIENT
  Sex: Female

DRUGS (6)
  1. MABTHERA [Suspect]
     Indication: MANTLE CELL LYMPHOMA
     Dosage: 520 MG, UNK
     Route: 042
     Dates: start: 20090605, end: 20090605
  2. CISPLATIN [Suspect]
     Indication: MANTLE CELL LYMPHOMA
     Dosage: 90 MG, UNK
     Route: 042
     Dates: start: 20090605, end: 20090605
  3. CYTARABINE [Suspect]
     Indication: MANTLE CELL LYMPHOMA
     Dosage: 1.8 G, UNK
     Route: 042
     Dates: start: 20090606, end: 20090606
  4. DEXAMETHASONE 0.5MG TAB [Suspect]
     Indication: MANTLE CELL LYMPHOMA
     Dosage: 10 MG, UNK
     Route: 042
     Dates: start: 20090605, end: 20090608
  5. BISOPROLOL [Concomitant]
     Indication: HYPERTENSION
  6. NICARDIPINE HYDROCHLORIDE [Concomitant]

REACTIONS (6)
  - CONVULSION [None]
  - HEADACHE [None]
  - HYPERTENSION [None]
  - LEUKOENCEPHALOPATHY [None]
  - PSYCHOMOTOR SKILLS IMPAIRED [None]
  - REVERSIBLE POSTERIOR LEUKOENCEPHALOPATHY SYNDROME [None]
